FAERS Safety Report 19514816 (Version 1)
Quarter: 2021Q3

REPORT INFORMATION
  Report Type: Spontaneous
  Country: DE (occurrence: DE)
  Receive Date: 20210709
  Receipt Date: 20210709
  Transmission Date: 20211014
  Serious: Yes (Other)
  Sender: FDA-Public Use
  Company Number: DE-ASTRAZENECA-2021A593440

PATIENT
  Sex: Female

DRUGS (6)
  1. NASONEX [Concomitant]
     Active Substance: MOMETASONE FUROATE
  2. RAMIPRIL. [Concomitant]
     Active Substance: RAMIPRIL
  3. LYNPARZA [Suspect]
     Active Substance: OLAPARIB
     Route: 048
  4. XARELTO [Concomitant]
     Active Substance: RIVAROXABAN
  5. SYMBICORT [Suspect]
     Active Substance: BUDESONIDE\FORMOTEROL FUMARATE DIHYDRATE
     Route: 055
  6. OXCARBAZEPINE. [Concomitant]
     Active Substance: OXCARBAZEPINE

REACTIONS (2)
  - Nausea [Unknown]
  - Epilepsy [Unknown]
